FAERS Safety Report 13621999 (Version 1)
Quarter: 2017Q2

REPORT INFORMATION
  Report Type: Spontaneous
  Country: US (occurrence: US)
  Receive Date: 20170607
  Receipt Date: 20170607
  Transmission Date: 20170830
  Serious: No
  Sender: FDA-Public Use
  Company Number: US-ROCHE-1885642

PATIENT
  Age: 68 Year
  Sex: Male
  Weight: 72.64 kg

DRUGS (2)
  1. XELODA [Suspect]
     Active Substance: CAPECITABINE
     Indication: COLON CANCER
     Dosage: NO
     Route: 048
     Dates: start: 201607
  2. XELODA [Suspect]
     Active Substance: CAPECITABINE
     Dosage: 3 TABLETS IN AM AND 3 TABLETS IN THE PM ;
     Route: 048

REACTIONS (7)
  - Unevaluable event [Not Recovered/Not Resolved]
  - Weight decreased [Unknown]
  - Pain in extremity [Not Recovered/Not Resolved]
  - Hyperaesthesia [Not Recovered/Not Resolved]
  - Onycholysis [Unknown]
  - Haemorrhage [Not Recovered/Not Resolved]
  - Skin fissures [Not Recovered/Not Resolved]

NARRATIVE: CASE EVENT DATE: 201607
